FAERS Safety Report 5814712-6 (Version None)
Quarter: 2008Q3

REPORT INFORMATION
  Report Type: 
  Country: None (occurrence: None)
  Receive Date: 20080718
  Receipt Date: 20071205
  Transmission Date: 20090109
  Serious: No
  Sender: FDA-Public Use
  Company Number: US-KINGPHARMUSA00001-K200701574

PATIENT

DRUGS (1)
  1. LEVOXYL [Suspect]
     Dosage: 50 MCG, UNK
     Route: 048

REACTIONS (1)
  - DRUG INEFFECTIVE [None]
